FAERS Safety Report 13978148 (Version 2)
Quarter: 2018Q3

REPORT INFORMATION
  Report Type: Spontaneous
  Country: US (occurrence: US)
  Receive Date: 20170914
  Receipt Date: 20180913
  Transmission Date: 20181010
  Serious: No
  Sender: FDA-Public Use
  Company Number: US-ASTELLAS-2017US033500

PATIENT
  Age: 71 Year
  Sex: Male

DRUGS (2)
  1. XTANDI [Suspect]
     Active Substance: ENZALUTAMIDE
     Indication: METASTASIS
     Dosage: 80 MG TWICE DAILY (2 TABLETS IN MORNING AND 2 IN EVENING)
     Route: 048
  2. XTANDI [Suspect]
     Active Substance: ENZALUTAMIDE
     Route: 048

REACTIONS (3)
  - Inappropriate schedule of drug administration [Unknown]
  - Burning sensation [Unknown]
  - Off label use [Unknown]

NARRATIVE: CASE EVENT DATE: 201804
